FAERS Safety Report 5840350-5 (Version None)
Quarter: 2008Q3

REPORT INFORMATION
  Report Type: 
  Country: None (occurrence: None)
  Receive Date: 20080811
  Receipt Date: 20080714
  Transmission Date: 20090109
  Serious: Yes (Life-Threatening, Hospitalization)
  Sender: FDA-Public Use
  Company Number: DE-MERCK-0807DEU00061

PATIENT
  Age: 51 Year
  Sex: Male

DRUGS (5)
  1. PRIMAXIN [Suspect]
     Indication: STAPHYLOCOCCAL SEPSIS
     Route: 042
  2. AZITHROMYCIN [Concomitant]
     Indication: STAPHYLOCOCCAL SEPSIS
     Route: 065
  3. CIPROFLOXACIN [Concomitant]
     Indication: STAPHYLOCOCCAL SEPSIS
     Route: 065
  4. LINEZOLID [Concomitant]
     Indication: STAPHYLOCOCCAL SEPSIS
     Route: 065
  5. CLINDAMYCIN [Concomitant]
     Indication: STAPHYLOCOCCAL SEPSIS
     Route: 065

REACTIONS (14)
  - ABSCESS [None]
  - ACUTE RESPIRATORY DISTRESS SYNDROME [None]
  - DRUG INEFFECTIVE [None]
  - ENDOCARDITIS [None]
  - HAEMODYNAMIC INSTABILITY [None]
  - HAEMOPTYSIS [None]
  - IMMUNE SYSTEM DISORDER [None]
  - PNEUMONIA [None]
  - PNEUMONIA STAPHYLOCOCCAL [None]
  - RENAL FAILURE [None]
  - RESPIRATORY FAILURE [None]
  - SEPTIC SHOCK [None]
  - SOFT TISSUE INFECTION [None]
  - STAPHYLOCOCCAL SEPSIS [None]
